FAERS Safety Report 24174549 (Version 4)
Quarter: 2025Q4

REPORT INFORMATION
  Report Type: Spontaneous
  Country: US (occurrence: US)
  Receive Date: 20240805
  Receipt Date: 20251125
  Transmission Date: 20260117
  Serious: No
  Sender: BELCHER PHARMACEUTICALS
  Company Number: US-BELCHER PHARMACEUTICALS, LLC-2024US002400

PATIENT

DRUGS (1)
  1. SEMAGLUTIDE [Suspect]
     Active Substance: SEMAGLUTIDE
     Indication: Product used for unknown indication
     Dosage: 5 MG/2ML (2.5 MG/ML)
     Route: 065
     Dates: start: 20240714

REACTIONS (2)
  - Vomiting [Recovered/Resolved]
  - Nausea [Recovered/Resolved]

NARRATIVE: CASE EVENT DATE: 20240714
